FAERS Safety Report 5933021-8 (Version None)
Quarter: 2008Q4

REPORT INFORMATION
  Report Type: 
  Country: None (occurrence: None)
  Receive Date: 20081028
  Receipt Date: 20081020
  Transmission Date: 20090506
  Serious: Yes (Other)
  Sender: FDA-Public Use
  Company Number: DE-ABBOTT-08P-062-0482850-00

PATIENT
  Age: 68 Year
  Sex: Female
  Weight: 73 kg

DRUGS (2)
  1. HUMIRA [Suspect]
     Indication: POLYARTHRITIS
     Route: 048
     Dates: start: 20070525, end: 20080706
  2. METHOTREXATE [Suspect]
     Indication: POLYARTHRITIS
     Route: 048
     Dates: start: 20000201, end: 20080620

REACTIONS (2)
  - MYELODYSPLASTIC SYNDROME [None]
  - REFRACTORY ANAEMIA [None]
